FAERS Safety Report 13550779 (Version 3)
Quarter: 2017Q4

REPORT INFORMATION
  Report Type: Report from Study
  Country: None (occurrence: US)
  Receive Date: 20170516
  Receipt Date: 20171116
  Transmission Date: 20180320
  Serious: Yes (Other)
  Sender: FDA-Public Use
  Company Number: US-ABBVIE-17P-163-1973895-00

PATIENT
  Age: 46 Year
  Sex: Female

DRUGS (1)
  1. HUMIRA [Suspect]
     Active Substance: ADALIMUMAB
     Indication: CROHN^S DISEASE
     Route: 058

REACTIONS (10)
  - Precancerous skin lesion [Unknown]
  - Red blood cells urine positive [Unknown]
  - Ovarian cyst [Unknown]
  - White blood cells urine positive [Unknown]
  - Nocturia [Unknown]
  - Neoplasm skin [Unknown]
  - Mammogram abnormal [Unknown]
  - Uterine cyst [Unknown]
  - Urinary tract infection [Recovered/Resolved]
  - Hypertension [Unknown]

NARRATIVE: CASE EVENT DATE: 2017
